FAERS Safety Report 14316120 (Version 2)
Quarter: 2018Q1

REPORT INFORMATION
  Report Type: Report from Study
  Country: NL (occurrence: NL)
  Receive Date: 20171222
  Receipt Date: 20180320
  Transmission Date: 20180509
  Serious: Yes (Hospitalization, Other)
  Sender: FDA-Public Use
  Company Number: NL-AMGEN-NLDSL2017188745

PATIENT
  Age: 67 Year
  Sex: Male

DRUGS (3)
  1. XGEVA [Suspect]
     Active Substance: DENOSUMAB
     Indication: PROPHYLAXIS
     Dosage: 120 MG/ 1.7 ML, Q4WK
     Route: 058
  2. XGEVA [Suspect]
     Active Substance: DENOSUMAB
     Dosage: UNK
     Route: 058
  3. XGEVA [Suspect]
     Active Substance: DENOSUMAB
     Dosage: UNK
     Route: 058

REACTIONS (4)
  - Pneumonia [Not Recovered/Not Resolved]
  - Gait inability [Not Recovered/Not Resolved]
  - Renal impairment [Recovering/Resolving]
  - Kidney enlargement [Recovering/Resolving]

NARRATIVE: CASE EVENT DATE: 20171216
